FAERS Safety Report 14484496 (Version 1)
Quarter: 2018Q1

REPORT INFORMATION
  Report Type: Report from Study
  Country: None (occurrence: US)
  Receive Date: 20180205
  Receipt Date: 20180205
  Transmission Date: 20180509
  Serious: Yes (Other)
  Sender: FDA-Public Use
  Company Number: US-ABBVIE-18K-163-2241077-00

PATIENT
  Sex: Female

DRUGS (1)
  1. HUMIRA [Suspect]
     Active Substance: ADALIMUMAB
     Indication: PSORIASIS
     Dosage: INITIAL DOSE
     Route: 058
     Dates: start: 20180129, end: 20180129

REACTIONS (5)
  - Swelling [Unknown]
  - Ovarian neoplasm [Unknown]
  - Lymphadenopathy [Unknown]
  - Neck pain [Unknown]
  - Nasopharyngitis [Unknown]
